FAERS Safety Report 23378321 (Version 1)
Quarter: 2024Q1

REPORT INFORMATION
  Report Type: Spontaneous
  Country: US (occurrence: US)
  Receive Date: 20240108
  Receipt Date: 20240108
  Transmission Date: 20240410
  Serious: No
  Sender: FDA-Public Use
  Company Number: US-ABBVIE-5574490

PATIENT
  Sex: Female

DRUGS (1)
  1. VRAYLAR [Suspect]
     Active Substance: CARIPRAZINE
     Indication: Bipolar disorder
     Dosage: FORM STRENGTH WAS 1.5 MILLIGRAM ?STOP DATE WAS A YEAR AG
     Route: 048

REACTIONS (1)
  - Dyskinesia [Recovering/Resolving]
